FAERS Safety Report 8565136 (Version 2)
Quarter: 2012Q4

REPORT INFORMATION
  Report Type: 
  Country: US (occurrence: US)
  Receive Date: 20120516
  Receipt Date: 20120926
  Transmission Date: 20130627
  Serious: Yes (Hospitalization, Other)
  Sender: FDA-Public Use
  Company Number: US-BAYER-2012-047513

PATIENT
  Age: 19 Year
  Sex: Female
  Weight: 64 kg

DRUGS (4)
  1. YAZ [Suspect]
     Indication: CONTRACEPTION
     Dosage: UNK
     Dates: start: 200902, end: 200904
  2. IRON [Concomitant]
     Dosage: UNK
     Dates: start: 20090224
  3. PRENATAL VITAMINS [Concomitant]
     Dosage: UNK
     Dates: start: 20090224
  4. VICODIN [Concomitant]
     Dosage: UNK
     Dates: start: 20090420

REACTIONS (5)
  - Gallbladder injury [None]
  - Injury [None]
  - Pain [None]
  - Cholecystitis chronic [None]
  - Hepatic function abnormal [None]
